FAERS Safety Report 6814423 (Version 2)
Quarter: 2015Q3

REPORT INFORMATION
  Report Type: Spontaneous
  Country: US (occurrence: US)
  Receive Date: 20081118
  Receipt Date: 20150727
  Transmission Date: 20151125
  Serious: Yes (Hospitalization)
  Sender: FDA-Public Use
  Company Number: US-BIOGENIDEC-2008BI029503

PATIENT
  Age: 57 Year
  Sex: Male

DRUGS (3)
  1. AVONEX [Suspect]
     Active Substance: INTERFERON BETA-1A
     Indication: MULTIPLE SCLEROSIS
     Route: 030
  2. INFLIXIMAB [Concomitant]
     Active Substance: INFLIXIMAB
     Route: 042
  3. INFLIXIMAB [Concomitant]
     Active Substance: INFLIXIMAB
     Route: 048

REACTIONS (1)
  - Dermatomyositis [Unknown]
